FAERS Safety Report 9528928 (Version 1)
Quarter: 2013Q3

REPORT INFORMATION
  Report Type: Spontaneous
  Country: GB (occurrence: GB)
  Receive Date: 20130917
  Receipt Date: 20130917
  Transmission Date: 20140515
  Serious: Yes (Other)
  Sender: FDA-Public Use
  Company Number: GB-SANOFI-AVENTIS-2013SA090941

PATIENT
  Age: 62 Year
  Sex: Male
  Weight: 95 kg

DRUGS (8)
  1. OXALIPLATIN [Suspect]
     Indication: PANCREATIC CARCINOMA
     Route: 042
     Dates: start: 20130318, end: 20130715
  2. IRINOTECAN [Suspect]
     Indication: PANCREATIC CARCINOMA
     Route: 042
     Dates: start: 20130318, end: 20130715
  3. 5-FU [Suspect]
     Indication: PANCREATIC CARCINOMA
     Dosage: 950MG BOLUS THEN 5650MG INFUSION OVER 48 HOURS EVERY 14 DAYS.
     Route: 042
     Dates: start: 20130318, end: 20130717
  4. CITALOPRAM [Concomitant]
  5. CREON [Concomitant]
  6. VALSARTAN [Concomitant]
  7. CODEINE PHOSPHATE [Concomitant]
  8. ALCOHOL [Concomitant]

REACTIONS (3)
  - Confusional state [Recovered/Resolved]
  - Weight decreased [Recovered/Resolved]
  - Restlessness [Recovered/Resolved]
